FAERS Safety Report 7964964-1 (Version None)
Quarter: 2011Q4

REPORT INFORMATION
  Report Type: 
  Country: None (occurrence: None)
  Receive Date: 20111206
  Receipt Date: 20111206
  Transmission Date: 20120403
  Serious: Yes (Other)
  Sender: FDA-Public Use
  Company Number: None

PATIENT
  Age: 64 Year
  Sex: Male

DRUGS (7)
  1. REVLIMID [Suspect]
     Indication: MULTIPLE MYELOMA
     Dosage: 25MG QDX14D21D ORALLY
     Route: 048
     Dates: start: 20110701, end: 20111101
  2. DECADRON [Concomitant]
  3. PRILOSEC [Concomitant]
  4. VELCADE [Concomitant]
  5. ASPIRIN [Concomitant]
  6. PRAVACHOL [Concomitant]
  7. ZOVIRAX [Concomitant]

REACTIONS (1)
  - NO THERAPEUTIC RESPONSE [None]
